FAERS Safety Report 17954769 (Version 1)
Quarter: 2020Q2

REPORT INFORMATION
  Report Type: Spontaneous
  Country: RS (occurrence: RS)
  Receive Date: 20200629
  Receipt Date: 20200629
  Transmission Date: 20200714
  Serious: Yes (Other)
  Sender: FDA-Public Use
  Company Number: RS-SA-2020SA165089

PATIENT

DRUGS (1)
  1. CEREZYME [Suspect]
     Active Substance: IMIGLUCERASE
     Indication: GAUCHER^S DISEASE TYPE III

REACTIONS (8)
  - Laboratory test abnormal [Unknown]
  - Generalised tonic-clonic seizure [Unknown]
  - Ataxia [Unknown]
  - Tremor [Unknown]
  - Haemangioma [Unknown]
  - Chitotriosidase increased [Unknown]
  - Muscle spasticity [Unknown]
  - Dysarthria [Unknown]
